FAERS Safety Report 4512702-7 (Version None)
Quarter: 2004Q4

REPORT INFORMATION
  Report Type: 
  Country: None (occurrence: None)
  Receive Date: 20041012
  Receipt Date: 20040802
  Transmission Date: 20050328
  Serious: No
  Sender: FDA-Public Use
  Company Number: A03200402580

PATIENT
  Sex: Male

DRUGS (2)
  1. AVAPRO [Suspect]
  2. UROXATRAL - ALFUZOSIN HDYROCHLORIDE [Suspect]
     Dosage: ORAL
     Route: 048

REACTIONS (1)
  - DRY MOUTH [None]
